FAERS Safety Report 13266313 (Version 2)
Quarter: 2017Q1

REPORT INFORMATION
  Report Type: Report from Study
  Country: CZ (occurrence: CZ)
  Receive Date: 20170223
  Receipt Date: 20170315
  Transmission Date: 20170428
  Serious: Yes (Hospitalization, Other)
  Sender: FDA-Public Use
  Company Number: PHHY2016CZ123833

PATIENT
  Age: 39 Year
  Sex: Female
  Weight: 60 kg

DRUGS (6)
  1. TRAMETINIB [Suspect]
     Active Substance: TRAMETINIB
     Dosage: 2 MG, QD
     Route: 048
     Dates: start: 20160910, end: 20161114
  2. TRAMETINIB [Suspect]
     Active Substance: TRAMETINIB
     Dosage: 2 MG, QD
     Route: 048
     Dates: start: 20161123, end: 20170203
  3. DABRAFENIB [Suspect]
     Active Substance: DABRAFENIB
     Indication: METASTATIC MALIGNANT MELANOMA
     Dosage: 75 MG, BID (2-0-2)
     Route: 048
     Dates: start: 20160805, end: 20160904
  4. DABRAFENIB [Suspect]
     Active Substance: DABRAFENIB
     Dosage: 150 MG, BID
     Route: 048
     Dates: start: 20161123, end: 20170203
  5. DABRAFENIB [Suspect]
     Active Substance: DABRAFENIB
     Dosage: 75 MG, BID
     Route: 048
     Dates: start: 20160909, end: 20161114
  6. TRAMETINIB [Suspect]
     Active Substance: TRAMETINIB
     Indication: METASTATIC MALIGNANT MELANOMA
     Dosage: 2 MG, QD (1-0-0)
     Route: 048
     Dates: start: 20160826, end: 20160904

REACTIONS (25)
  - Oropharyngeal pain [Recovered/Resolved with Sequelae]
  - Spinal pain [Unknown]
  - Pyrexia [Recovered/Resolved with Sequelae]
  - Upper respiratory tract infection [Unknown]
  - Sleep disorder [Recovered/Resolved with Sequelae]
  - Lymphadenopathy [Unknown]
  - Infection [Unknown]
  - Neck pain [Unknown]
  - Pain [Unknown]
  - Gastrointestinal sounds abnormal [Recovered/Resolved]
  - Vision blurred [Not Recovered/Not Resolved]
  - Ileus [Unknown]
  - Arthralgia [Unknown]
  - Macular oedema [Recovered/Resolved with Sequelae]
  - Malignant neoplasm progression [Unknown]
  - Radiculopathy [Unknown]
  - Vomiting [Recovering/Resolving]
  - Blood lactate dehydrogenase increased [Unknown]
  - Dysphagia [Recovered/Resolved with Sequelae]
  - Visual impairment [Unknown]
  - Abdominal pain lower [Recovering/Resolving]
  - Abnormal faeces [Recovering/Resolving]
  - Metastases to central nervous system [Unknown]
  - Pyrexia [Recovered/Resolved with Sequelae]
  - Anaemia [Unknown]

NARRATIVE: CASE EVENT DATE: 20160904
